FAERS Safety Report 7736877 (Version 2)
Quarter: 2018Q2

REPORT INFORMATION
  Report Type: Spontaneous
  Country: GB (occurrence: GB)
  Receive Date: 20101223
  Receipt Date: 20180620
  Transmission Date: 20180711
  Serious: Yes (Death, Other)
  Sender: FDA-Public Use
  Company Number: GB-ASTRAZENECA-2010SE59821

PATIENT
  Age: 21 Year
  Sex: Male

DRUGS (3)
  1. PROPOFOL. [Suspect]
     Active Substance: PROPOFOL
     Indication: SEDATION
     Dosage: AVERAGE DAILY DOSE (4 MG/KG/H) IN INCREASING DOSES
     Route: 042
  2. FENTANYL. [Concomitant]
     Active Substance: FENTANYL
     Indication: SEDATION
  3. MIDAZOLAM [Concomitant]
     Active Substance: MIDAZOLAM HYDROCHLORIDE

REACTIONS (2)
  - Cardiac arrest [Fatal]
  - Propofol infusion syndrome [Fatal]
